FAERS Safety Report 8301867-7 (Version None)
Quarter: 2012Q2

REPORT INFORMATION
  Report Type: 
  Country: None (occurrence: None)
  Receive Date: 20120420
  Receipt Date: 20120416
  Transmission Date: 20120825
  Serious: Yes (Life-Threatening)
  Sender: FDA-Public Use
  Company Number: FR-ASTRAZENECA-2012SE25116

PATIENT
  Age: 47 Year
  Sex: Male

DRUGS (8)
  1. XYLOCAINE [Suspect]
     Indication: ANAESTHESIA
     Route: 042
     Dates: start: 20120402, end: 20120402
  2. SUFENTANIL CITRATE [Suspect]
     Indication: ANAESTHESIA
     Route: 042
     Dates: start: 20120402, end: 20120402
  3. PROPOFOL [Suspect]
     Indication: ANAESTHESIA
     Route: 042
     Dates: start: 20120402, end: 20120402
  4. TRACRIUM [Suspect]
     Indication: ANAESTHESIA
     Route: 042
     Dates: start: 20120402, end: 20120402
  5. ATHYMIL [Concomitant]
  6. POTASSIUM CHLORIDE [Concomitant]
  7. DIAMOX [Concomitant]
  8. LASIX [Concomitant]

REACTIONS (1)
  - ANAPHYLACTIC SHOCK [None]
